FAERS Safety Report 17086387 (Version 2)
Quarter: 2024Q2

REPORT INFORMATION
  Report Type: Other
  Country: CA (occurrence: CA)
  Receive Date: 20191128
  Receipt Date: 20240424
  Transmission Date: 20240716
  Serious: Yes (Disabling)
  Sender: FDA-Public Use
  Company Number: CA-002147023-PHHY2018CA025184

PATIENT
  Age: 32 Year
  Sex: Female

DRUGS (3)
  1. XOLAIR [Suspect]
     Active Substance: OMALIZUMAB
     Indication: Chronic spontaneous urticaria
     Route: 058
     Dates: start: 20180612, end: 2022
  2. CETIRIZINE HYDROCHLORIDE [Concomitant]
     Active Substance: CETIRIZINE HYDROCHLORIDE
     Indication: Product used for unknown indication
     Route: 048
     Dates: start: 201803
  3. PREDNISONE [Concomitant]
     Active Substance: PREDNISONE
     Indication: Product used for unknown indication

REACTIONS (8)
  - Pyrexia [Unknown]
  - Viral infection [Unknown]
  - Urticaria [Not Recovered/Not Resolved]
  - Pruritus [Recovered/Resolved]
  - Skin discolouration [Unknown]
  - Oedema [Unknown]
  - Insomnia [Unknown]
  - Influenza [Unknown]

NARRATIVE: CASE EVENT DATE: 20180612
